FAERS Safety Report 25683100 (Version 1)
Quarter: 2025Q3

REPORT INFORMATION
  Report Type: Spontaneous
  Country: US (occurrence: None)
  Receive Date: 20250805
  Receipt Date: 20250805
  Transmission Date: 20251021
  Serious: Yes (Other)
  Sender: FDA-CTU
  Company Number: None

PATIENT
  Age: 73 Year
  Sex: Female

DRUGS (1)
  1. MYCOPHENOLIC ACID [Suspect]
     Active Substance: MYCOPHENOLIC ACID
     Indication: Perinatal depression
     Dosage: FREQUENCY : DAILY;?
     Route: 048

REACTIONS (2)
  - Squamous cell carcinoma [None]
  - Therapy cessation [None]

NARRATIVE: CASE EVENT DATE: 20250605
